FAERS Safety Report 7351176-8 (Version None)
Quarter: 2011Q1

REPORT INFORMATION
  Report Type: 
  Country: None (occurrence: None)
  Receive Date: 20110314
  Receipt Date: 20110121
  Transmission Date: 20110831
  Serious: No
  Sender: FDA-Public Use
  Company Number: US-BAYER-2011-008414

PATIENT
  Sex: Female
  Weight: 134 kg

DRUGS (1)
  1. ALEVE [Suspect]
     Indication: ARTHRITIS
     Dosage: DAILY FOR 2 YEARS
     Route: 048

REACTIONS (1)
  - NO ADVERSE EVENT [None]
